FAERS Safety Report 23698364 (Version 2)
Quarter: 2024Q2

REPORT INFORMATION
  Report Type: Spontaneous
  Country: JP (occurrence: None)
  Receive Date: 20240402
  Receipt Date: 20240527
  Transmission Date: 20240715
  Serious: Yes (Other)
  Sender: FDA-Public Use
  Company Number: JP-ROCHE-3510459

PATIENT
  Age: 11 Year
  Sex: Male

DRUGS (5)
  1. XOFLUZA [Suspect]
     Active Substance: BALOXAVIR MARBOXIL
     Indication: Influenza
     Route: 048
     Dates: start: 20240111, end: 20240111
  2. CALONAL [Concomitant]
     Active Substance: ACETAMINOPHEN
     Indication: Upper respiratory tract inflammation
     Route: 048
     Dates: start: 20240111
  3. MITICURE [Concomitant]
     Active Substance: DERMATOPHAGOIDES FARINAE\DERMATOPHAGOIDES PTERONYSSINUS
     Indication: Rhinitis allergic
  4. LEVOCETIRIZINE HYDROCHLORIDE [Concomitant]
     Active Substance: LEVOCETIRIZINE HYDROCHLORIDE
     Indication: Rhinitis allergic
     Route: 048
     Dates: start: 20240110
  5. PRANLUKAST [Concomitant]
     Active Substance: PRANLUKAST
     Indication: Rhinitis allergic
     Route: 048
     Dates: start: 20240110

REACTIONS (1)
  - Vertigo [Recovered/Resolved]

NARRATIVE: CASE EVENT DATE: 20240111
